FAERS Safety Report 7928695-6 (Version None)
Quarter: 2011Q4

REPORT INFORMATION
  Report Type: 
  Country: None (occurrence: None)
  Receive Date: 20111118
  Receipt Date: 20111114
  Transmission Date: 20120403
  Serious: No
  Sender: FDA-Public Use
  Company Number: US-PFIZER INC-2011278815

PATIENT
  Sex: Female
  Weight: 56.236 kg

DRUGS (7)
  1. PREMARIN [Concomitant]
     Indication: HORMONE REPLACEMENT THERAPY
     Dosage: 0.625 MG, 1X/DAY
  2. DETROL LA [Suspect]
     Indication: HYPERTONIC BLADDER
     Dosage: 4 MG, 1X/DAY
     Route: 048
     Dates: end: 20111107
  3. WELLBUTRIN XL [Concomitant]
     Indication: DEPRESSION
     Dosage: 300 MG, 1X/DAY
  4. DEXLANSOPRAZOLE [Concomitant]
     Indication: COELIAC DISEASE
     Dosage: 60 MG, 1X/DAY
  5. TOVIAZ [Concomitant]
     Indication: HYPERTONIC BLADDER
     Dosage: 4 MG, 1X/DAY
     Route: 048
     Dates: start: 20111020, end: 20111107
  6. TOVIAZ [Concomitant]
     Dosage: 8 MG, 1X/DAY
     Route: 048
     Dates: start: 20111107
  7. CARBAMAZEPINE [Concomitant]
     Indication: DEPRESSION
     Dosage: 400 MG, 1X/DAY

REACTIONS (1)
  - DRUG INEFFECTIVE [None]
